FAERS Safety Report 10154634 (Version 4)
Quarter: 2015Q1

REPORT INFORMATION
  Report Type: Report from Study
  Country: GR (occurrence: GR)
  Receive Date: 20140506
  Receipt Date: 20150220
  Transmission Date: 20150720
  Serious: Yes (Hospitalization)
  Sender: FDA-Public Use
  Company Number: GR-NOVOPROD-407327

PATIENT
  Age: 72 Year
  Sex: Male
  Weight: 85 kg

DRUGS (5)
  1. COVERSYL                           /00790702/ [Concomitant]
     Active Substance: PERINDOPRIL
     Route: 065
  2. GLUCOPHAGE [Concomitant]
     Active Substance: METFORMIN HYDROCHLORIDE
     Dosage: 850 MG, TID (1 IN MORNING, 1 IN NOON AND 1 AT NIGHT)
     Route: 048
  3. LIPEXAL [Concomitant]
     Route: 065
  4. NOVOMIX 30 FLEXPEN [Suspect]
     Active Substance: INSULIN ASPART
     Indication: DIABETES MELLITUS
     Dosage: 50 IU, QD (25IU MORNING+ 25 IU NIGHT)
     Route: 065
     Dates: start: 20140410
  5. SOLOSA [Concomitant]
     Active Substance: GLIMEPIRIDE
     Dosage: 100 MG, QD
     Route: 048

REACTIONS (1)
  - Bile duct stone [Recovered/Resolved]

NARRATIVE: CASE EVENT DATE: 201404
